FAERS Safety Report 13588646 (Version 1)
Quarter: 2017Q2

REPORT INFORMATION
  Report Type: Report from Study
  Country: US (occurrence: US)
  Receive Date: 20170529
  Receipt Date: 20170529
  Transmission Date: 20170830
  Serious: Yes (Other)
  Sender: FDA-Public Use
  Company Number: US-UCBSA-2015035886

PATIENT
  Age: 61 Year
  Sex: Female

DRUGS (2)
  1. CERTOLIZUMAB PEGOL [Suspect]
     Active Substance: CERTOLIZUMAB PEGOL
     Indication: RHEUMATOID ARTHRITIS
     Dosage: 200 MG, EV 2 WEEKS(QOW) (NDC # 50474071079)
     Dates: start: 20150601, end: 201510
  2. CERTOLIZUMAB PEGOL [Suspect]
     Active Substance: CERTOLIZUMAB PEGOL
     Dosage: 200 MG, EV 2 WEEKS(QOW) STRENGTH: 200
     Dates: start: 2015, end: 20151124

REACTIONS (7)
  - Viral upper respiratory tract infection [Not Recovered/Not Resolved]
  - Urinary tract infection [Not Recovered/Not Resolved]
  - Nephrolithiasis [Unknown]
  - Peripheral swelling [Recovering/Resolving]
  - Pruritus [Unknown]
  - Incorrect product storage [Unknown]
  - Rash [Unknown]

NARRATIVE: CASE EVENT DATE: 2015
